FAERS Safety Report 10070612 (Version 3)
Quarter: 2015Q1

REPORT INFORMATION
  Report Type: Spontaneous
  Country: US (occurrence: None)
  Receive Date: 20140409
  Receipt Date: 20150129
  Transmission Date: 20150720
  Serious: Yes (Hospitalization)
  Sender: FDA-Public Use
  Company Number: 2014CT000038

PATIENT
  Age: 56 Year
  Sex: Female
  Weight: 136.08 kg

DRUGS (12)
  1. ACARBOSE. [Concomitant]
     Active Substance: ACARBOSE
  2. ATENOLOL. [Concomitant]
     Active Substance: ATENOLOL
  3. ATORVASTATIN [Concomitant]
     Active Substance: ATORVASTATIN
  4. VITAMIN D [Concomitant]
     Active Substance: CHOLECALCIFEROL
  5. POTASSIUM [Concomitant]
     Active Substance: POTASSIUM
  6. LISINOPRIL. [Concomitant]
     Active Substance: LISINOPRIL
  7. TRIAMTERENE. [Concomitant]
     Active Substance: TRIAMTERENE
  8. KORLYM [Suspect]
     Active Substance: MIFEPRISTONE
     Indication: CUSHING^S SYNDROME
     Route: 048
     Dates: start: 20131223, end: 20140123
  9. LASIX [Concomitant]
     Active Substance: FUROSEMIDE
  10. VERAPAMIL [Concomitant]
     Active Substance: VERAPAMIL HYDROCHLORIDE
  11. LIVALO [Suspect]
     Active Substance: PITAVASTATIN CALCIUM
  12. METARAMINOL [Concomitant]
     Active Substance: METARAMINOL

REACTIONS (6)
  - Oedema peripheral [None]
  - Renal impairment [None]
  - Blood potassium decreased [None]
  - Blood pressure increased [None]
  - Dyspnoea [None]
  - Cardiac failure congestive [None]

NARRATIVE: CASE EVENT DATE: 201402
